FAERS Safety Report 4871046-4 (Version None)
Quarter: 2005Q4

REPORT INFORMATION
  Report Type: 
  Country: None (occurrence: None)
  Receive Date: 20051229
  Receipt Date: 20051216
  Transmission Date: 20060501
  Serious: Yes (Disabling, Other)
  Sender: FDA-Public Use
  Company Number: JP200512003137

PATIENT
  Age: 66 Year
  Sex: Male

DRUGS (5)
  1. GEMZAR [Suspect]
     Indication: BLADDER CANCER
     Dosage: SEE IMAGE
     Route: 042
     Dates: start: 20050101, end: 20050301
  2. GEMZAR [Suspect]
     Indication: BLADDER CANCER
     Dosage: SEE IMAGE
     Route: 042
     Dates: start: 20051102, end: 20051109
  3. GEMZAR [Suspect]
     Indication: BLADDER CANCER
     Dosage: SEE IMAGE
     Route: 042
     Dates: start: 20051212, end: 20051212
  4. CISPLATIN (CISPLATIN) VIAL [Concomitant]
  5. PACLITAXEL (PACLITAXE) VIAL [Concomitant]

REACTIONS (6)
  - DIZZINESS [None]
  - EXPRESSIVE LANGUAGE DISORDER [None]
  - HALLUCINATION [None]
  - HEADACHE [None]
  - HEARING IMPAIRED [None]
  - NERVOUS SYSTEM DISORDER [None]
